FAERS Safety Report 7726516-8 (Version None)
Quarter: 2011Q3

REPORT INFORMATION
  Report Type: 
  Country: None (occurrence: None)
  Receive Date: 20110902
  Receipt Date: 20110823
  Transmission Date: 20111222
  Serious: Yes (Hospitalization, Other)
  Sender: FDA-Public Use
  Company Number: PHHY2011US69045

PATIENT
  Sex: Female

DRUGS (5)
  1. CRESTOR [Concomitant]
     Indication: HYPERLIPIDAEMIA
     Dosage: 10 MG, QD
     Route: 048
  2. LEVAQUIN [Concomitant]
     Dosage: UNK UKN, UNK
  3. GILENYA [Suspect]
     Indication: MULTIPLE SCLEROSIS
     Dosage: 0.5 MG, QD
     Route: 048
     Dates: start: 20110607, end: 20110713
  4. LISINOPRIL [Concomitant]
     Indication: HYPERTENSION
     Dosage: 10 MG, QD
     Route: 048
  5. CIPROFLOXACIN [Concomitant]
     Dosage: UNK UKN, UNK

REACTIONS (7)
  - CYSTITIS [None]
  - DIARRHOEA [None]
  - BLOOD PRESSURE DECREASED [None]
  - NEPHROLITHIASIS [None]
  - KIDNEY INFECTION [None]
  - PYREXIA [None]
  - PAIN [None]
